FAERS Safety Report 11784430 (Version 3)
Quarter: 2016Q1

REPORT INFORMATION
  Report Type: Spontaneous
  Country: JP (occurrence: JP)
  Receive Date: 20151129
  Receipt Date: 20160120
  Transmission Date: 20160525
  Serious: Yes (Hospitalization)
  Sender: FDA-Public Use
  Company Number: JP-B.I. PHARMACEUTICALS,INC./RIDGEFIELD-2015-BI-66148NB

PATIENT
  Age: 74 Year
  Sex: Male

DRUGS (2)
  1. PRAZAXA [Suspect]
     Active Substance: DABIGATRAN ETEXILATE MESYLATE
     Indication: ATRIAL FIBRILLATION
     Route: 048
  2. CIBENOL [Concomitant]
     Active Substance: CIFENLINE
     Indication: PRODUCT USED FOR UNKNOWN INDICATION
     Route: 065

REACTIONS (4)
  - Discomfort [Recovered/Resolved]
  - Nasopharyngitis [Recovered/Resolved]
  - Decreased appetite [Recovered/Resolved]
  - Brain neoplasm [Recovered/Resolved]

NARRATIVE: CASE EVENT DATE: 201508
